FAERS Safety Report 5127366-1 (Version None)
Quarter: 2006Q4

REPORT INFORMATION
  Report Type: 
  Country: None (occurrence: None)
  Receive Date: 20061010
  Receipt Date: 20060921
  Transmission Date: 20070319
  Serious: Yes (Other)
  Sender: FDA-Public Use
  Company Number: PHBS2006AR14609

PATIENT
  Age: 66 Year
  Sex: Male

DRUGS (4)
  1. CYCLOSPORINE [Suspect]
     Indication: HEART TRANSPLANT
  2. AZATHIOPRINE [Suspect]
     Indication: HEART TRANSPLANT
  3. PREDNISONE [Suspect]
     Indication: HEART TRANSPLANT
  4. SIROLIMUS (SIROLIMUS) [Suspect]
     Indication: HEART TRANSPLANT

REACTIONS (3)
  - COLON CANCER [None]
  - MALIGNANT MELANOMA [None]
  - OBLITERATIVE BRONCHIOLITIS [None]
